FAERS Safety Report 9226830 (Version 4)
Quarter: 2014Q1

REPORT INFORMATION
  Report Type: Report from Study
  Country: US (occurrence: US)
  Receive Date: 20130412
  Receipt Date: 20140228
  Transmission Date: 20141002
  Serious: Yes (Hospitalization)
  Sender: FDA-Public Use
  Company Number: US-009507513-1304USA002375

PATIENT
  Age: 44 Year
  Sex: Male
  Weight: 77 kg

DRUGS (20)
  1. BOCEPREVIR [Suspect]
     Indication: HEPATITIS C
     Dosage: 2400 MG, Q8H
     Route: 048
     Dates: start: 20130320
  2. PEGINTRON [Suspect]
     Indication: HEPATITIS C
     Dosage: 120 MICROGRAM, QW
     Route: 058
     Dates: start: 20130220, end: 20130326
  3. COPEGUS [Suspect]
     Indication: HEPATITIS C
     Dosage: 400 MG IN THE MORNING AND 600 MG IN THE EVENING
     Route: 048
     Dates: start: 20130220
  4. FLOMAX (MORNIFLUMATE) [Suspect]
     Indication: BENIGN PROSTATIC HYPERPLASIA
     Dosage: 0.4 MG, QD
     Route: 048
     Dates: start: 201203, end: 20130331
  5. CARDURA [Suspect]
     Indication: HYPERTENSION
     Dosage: 8 MG, HS
     Route: 048
     Dates: start: 200903, end: 20130331
  6. LITHIUM [Concomitant]
     Indication: BIPOLAR DISORDER
     Dosage: 1200 MG, HS
     Route: 048
     Dates: start: 200804, end: 20130401
  7. SEROQUEL [Concomitant]
     Indication: INSOMNIA
     Dosage: 1-3 TABLETS, HS
     Route: 048
  8. COZAAR [Concomitant]
     Indication: HYPERTENSION
     Dosage: 50 MG, QD
     Route: 048
     Dates: start: 200804, end: 20130401
  9. ROBITUSSIN [Concomitant]
     Indication: COUGH
     Dosage: 5 ML, Q6H, PRN
     Route: 048
  10. FLEXERIL [Concomitant]
     Indication: MUSCLE SPASMS
     Dosage: 10 MG, Q8H, PRN
     Route: 048
  11. FLEXERIL [Concomitant]
     Indication: NECK PAIN
  12. ATRIPLA [Concomitant]
     Dosage: 1 DF, QD
     Route: 048
  13. NEXIUM [Concomitant]
     Dosage: 40 MG, QD
     Route: 048
  14. IMODIUM [Concomitant]
     Indication: DIARRHOEA
     Dosage: ONE CAP WITH EACH LOOSE STOOL, NO MORE
     Route: 048
  15. ATIVAN [Concomitant]
     Indication: ANXIETY
     Dosage: EVERY 8 HOURS AS NEEDED
     Route: 048
  16. ATIVAN [Concomitant]
     Indication: WITHDRAWAL SYNDROME
  17. NAPROSYN [Concomitant]
     Indication: PAIN
     Dosage: 500 MG, Q12H, PRN
     Route: 048
  18. PERCOCET [Concomitant]
     Indication: PAIN
     Dosage: 5-325 MG, Q6H, PRN
     Route: 048
  19. ZOFRAN [Concomitant]
     Indication: NAUSEA
     Dosage: 1 TABLET PRN
     Route: 048
  20. MSIR [Concomitant]
     Indication: PAIN
     Dosage: 0.5 TABLET, Q6H, PRN

REACTIONS (1)
  - Priapism [Recovered/Resolved with Sequelae]
